FAERS Safety Report 24437646 (Version 8)
Quarter: 2025Q1

REPORT INFORMATION
  Report Type: Spontaneous
  Country: US (occurrence: US)
  Receive Date: 20241015
  Receipt Date: 20250108
  Transmission Date: 20250409
  Serious: No
  Sender: PFIZER
  Company Number: US-PFIZER INC-202400269981

PATIENT
  Age: 15 Year
  Sex: Male
  Weight: 45.351 kg

DRUGS (3)
  1. GENOTROPIN [Suspect]
     Active Substance: SOMATROPIN
     Indication: Growth hormone deficiency
     Dosage: 1 MG, 1X/DAY
     Dates: start: 20240111
  2. GENOTROPIN [Suspect]
     Active Substance: SOMATROPIN
     Indication: Hypopituitarism
     Dosage: 1.2 MG, 1X/DAY NIGHTLY AT BEDTIME, 7 DAYS/WEEK
     Route: 058
  3. GENOTROPIN [Suspect]
     Active Substance: SOMATROPIN
     Dosage: NIGHTLY MOVES AROUND WITHIN THE STOMACH, RIGHT OR LEFT THIGH AND BUTTOCK ROTATED

REACTIONS (2)
  - Device mechanical issue [Unknown]
  - Poor quality device used [Unknown]

NARRATIVE: CASE EVENT DATE: 20240901
